FAERS Safety Report 23760037 (Version 2)
Quarter: 2024Q2

REPORT INFORMATION
  Report Type: Spontaneous
  Country: NL (occurrence: NL)
  Receive Date: 20240419
  Receipt Date: 20240501
  Transmission Date: 20240716
  Serious: Yes (Death, Other)
  Sender: FDA-Public Use
  Company Number: NL-AMGEN-NLDSP2024073270

PATIENT
  Age: 54 Year
  Sex: Male

DRUGS (2)
  1. FILGRASTIM [Suspect]
     Active Substance: FILGRASTIM
     Indication: Leukopenia
     Dosage: 0.5 MILLILITER, 48.000.000E=0.5 ML (96.000.000E/ML)/ 1 EVERY 2 DAYS 0.5 MILLILITER AT 8:00 AM
     Route: 042
     Dates: start: 20230320
  2. FILGRASTIM [Suspect]
     Active Substance: FILGRASTIM
     Indication: Off label use

REACTIONS (6)
  - Leukopenia [Fatal]
  - Pancytopenia [Unknown]
  - B-cell lymphoma [Unknown]
  - Sepsis [Unknown]
  - Off label use [Unknown]
  - Incorrect route of product administration [Unknown]

NARRATIVE: CASE EVENT DATE: 20230101
